FAERS Safety Report 14576820 (Version 1)
Quarter: 2018Q1

REPORT INFORMATION
  Report Type: Spontaneous
  Country: US (occurrence: US)
  Receive Date: 20180225
  Receipt Date: 20180225
  Transmission Date: 20180509
  Serious: Yes (Life-Threatening, Disabling, Other)
  Sender: FDA-Public Use
  Company Number: None

PATIENT
  Sex: Male
  Weight: 118.8 kg

DRUGS (14)
  1. DEXMETHYLPHENIDATE HYDROCHLORIDE. [Concomitant]
     Active Substance: DEXMETHYLPHENIDATE HYDROCHLORIDE
  2. OXYCODONE [Concomitant]
     Active Substance: OXYCODONE
  3. ASPIRIN. [Concomitant]
     Active Substance: ASPIRIN
  4. TOPIRAMATE. [Concomitant]
     Active Substance: TOPIRAMATE
  5. RAINIHDIVE [Concomitant]
  6. VITAMIN C [Concomitant]
     Active Substance: ASCORBIC ACID
  7. FISH OIL [Concomitant]
     Active Substance: FISH OIL
  8. PRAMIPEXOLE DIHYDRO [Concomitant]
  9. ABILIFY [Suspect]
     Active Substance: ARIPIPRAZOLE
     Indication: DEPRESSION
     Dosage: ?          QUANTITY:1 TABLET(S);?
     Route: 048
     Dates: start: 20130410, end: 20160615
  10. ARICEPT [Concomitant]
     Active Substance: DONEPEZIL HYDROCHLORIDE
  11. SIMVASTATIN. [Concomitant]
     Active Substance: SIMVASTATIN
  12. COENZYME Q10 [Concomitant]
     Active Substance: UBIDECARENONE
  13. LISINOPRIL. [Concomitant]
     Active Substance: LISINOPRIL
  14. CINNAMON. [Concomitant]
     Active Substance: CINNAMON

REACTIONS (5)
  - Libido increased [None]
  - Economic problem [None]
  - Weight increased [None]
  - Derealisation [None]
  - Hyperphagia [None]

NARRATIVE: CASE EVENT DATE: 20130410
